FAERS Safety Report 19631201 (Version 1)
Quarter: 2021Q3

REPORT INFORMATION
  Report Type: Spontaneous
  Country: CN (occurrence: CN)
  Receive Date: 20210728
  Receipt Date: 20210728
  Transmission Date: 20211014
  Serious: Yes (Hospitalization)
  Sender: FDA-Public Use
  Company Number: CN-PFIZER INC-2021894820

PATIENT
  Age: 58 Year
  Sex: Female

DRUGS (2)
  1. SODIUM VALPROATE [Concomitant]
     Active Substance: VALPROATE SODIUM
     Indication: EPILEPSY
     Dosage: 0.2 G, 3X/DAY
     Route: 048
     Dates: start: 20210628, end: 20210701
  2. ZYVOX [Suspect]
     Active Substance: LINEZOLID
     Indication: INTRACRANIAL INFECTION
     Dosage: 600 MG, 2X/DAY
     Route: 041
     Dates: start: 20210628, end: 20210702

REACTIONS (1)
  - Drug-induced liver injury [Recovering/Resolving]

NARRATIVE: CASE EVENT DATE: 20210702
